FAERS Safety Report 5161615-9 (Version None)
Quarter: 2006Q4

REPORT INFORMATION
  Report Type: 
  Country: None (occurrence: None)
  Receive Date: 20061121
  Receipt Date: 20061107
  Transmission Date: 20070319
  Serious: Yes (Other)
  Sender: FDA-Public Use
  Company Number: 2006123343

PATIENT
  Age: 15 Year
  Sex: Female

DRUGS (1)
  1. DOSTINEX [Suspect]
     Indication: BLOOD PROLACTIN INCREASED
     Dosage: 0.5 MG (0.5 MG, 1 IN 1 WK), ORAL
     Route: 048
     Dates: start: 20050101

REACTIONS (5)
  - BRAIN NEOPLASM [None]
  - COMPUTERISED TOMOGRAM ABNORMAL [None]
  - NAUSEA [None]
  - NERVOUS SYSTEM DISORDER [None]
  - ORAL INTAKE REDUCED [None]
